FAERS Safety Report 5662410-4 (Version None)
Quarter: 2008Q1

REPORT INFORMATION
  Report Type: 
  Country: None (occurrence: None)
  Receive Date: 20080313
  Receipt Date: 20080304
  Transmission Date: 20080703
  Serious: Yes (Other)
  Sender: FDA-Public Use
  Company Number: CH-ASTRAZENECA-2008PK00441

PATIENT
  Age: 501 Month
  Sex: Male
  Weight: 92 kg

DRUGS (3)
  1. SYMBICORT [Suspect]
     Indication: ASTHMA
     Dosage: 160/4.5UG
     Route: 055
     Dates: start: 20040301, end: 20061201
  2. SYMBICORT [Suspect]
     Dosage: ONE INHALATION 160/4.5 UG
     Route: 055
     Dates: start: 20070101, end: 20070901
  3. SYMBICORT [Suspect]
     Dosage: TWO INHALATIONS BID 160/4.5 UG
     Route: 055
     Dates: start: 20071001

REACTIONS (1)
  - ERECTILE DYSFUNCTION [None]
